FAERS Safety Report 9837504 (Version 1)
Quarter: 2014Q1

REPORT INFORMATION
  Report Type: Report from Study
  Country: BR (occurrence: BR)
  Receive Date: 20140123
  Receipt Date: 20140123
  Transmission Date: 20141002
  Serious: Yes (Hospitalization, Other)
  Sender: FDA-Public Use
  Company Number: PHHY2014BR005897

PATIENT
  Sex: Female
  Weight: 71 kg

DRUGS (5)
  1. ACLASTA [Suspect]
     Indication: OSTEOPOROSIS
     Dosage: 5 MG, ONCE A YEAR
     Route: 042
     Dates: start: 2011
  2. ACLASTA [Suspect]
     Dosage: 5 MG, ONCE A YEAR
     Route: 042
     Dates: start: 2012
  3. ACLASTA [Suspect]
     Dosage: 5 MG, ONCE A YEAR
     Route: 042
     Dates: start: 20131002
  4. CALCIUM D3 [Suspect]
     Indication: OSTEOPOROSIS
     Dosage: 1 DF, DAILY, USED FOR 10 DAYS
     Route: 048
     Dates: start: 201310
  5. PARACETAMOL [Concomitant]
     Indication: PAIN
     Dosage: 2 DF, DAILY
     Route: 048

REACTIONS (12)
  - Road traffic accident [Unknown]
  - Fall [Unknown]
  - Balance disorder [Unknown]
  - Spinal compression fracture [Unknown]
  - Discomfort [Unknown]
  - Pain in extremity [Not Recovered/Not Resolved]
  - Osteoporosis [Not Recovered/Not Resolved]
  - Pain [Unknown]
  - Gastrointestinal disorder [Recovered/Resolved]
  - Calcinosis [Not Recovered/Not Resolved]
  - Insomnia [Not Recovered/Not Resolved]
  - Myalgia [Not Recovered/Not Resolved]
